FAERS Safety Report 11167641 (Version 3)
Quarter: 2015Q3

REPORT INFORMATION
  Report Type: Spontaneous
  Country: US (occurrence: US)
  Receive Date: 20150605
  Receipt Date: 20150805
  Transmission Date: 20151125
  Serious: Yes (Death, Hospitalization, Other)
  Sender: FDA-Public Use
  Company Number: US-PFIZER INC-2015184816

PATIENT
  Age: 46 Year
  Sex: Female

DRUGS (4)
  1. IBRANCE [Suspect]
     Active Substance: PALBOCICLIB
     Dosage: 125 MG, CYCLIC (EVERY 21 DAYS)
     Route: 048
     Dates: start: 20150404
  2. IBRANCE [Suspect]
     Active Substance: PALBOCICLIB
     Dosage: 100 MG, CYCLIC (EVERY 21 DAYS)
     Route: 048
  3. IBRANCE [Suspect]
     Active Substance: PALBOCICLIB
     Indication: BREAST CANCER METASTATIC
     Dosage: UNK (RECEIVED 2 CYCLES)
     Route: 048
     Dates: start: 201503
  4. LETROZOLE. [Suspect]
     Active Substance: LETROZOLE
     Indication: BREAST CANCER METASTATIC
     Dosage: UNK

REACTIONS (7)
  - Breast cancer metastatic [Fatal]
  - Pulmonary hypertension [Unknown]
  - Tachycardia [Unknown]
  - Dyspnoea [Unknown]
  - Pulmonary haemorrhage [Fatal]
  - Disease progression [Fatal]
  - Blood count abnormal [Unknown]

NARRATIVE: CASE EVENT DATE: 201505
